FAERS Safety Report 4331238-X (Version None)
Quarter: 2004Q1

REPORT INFORMATION
  Report Type: 
  Country: None (occurrence: None)
  Receive Date: 20040331
  Receipt Date: 20040325
  Transmission Date: 20041129
  Serious: Yes (Hospitalization)
  Sender: FDA-Public Use
  Company Number: 04P-020-0249467-00

PATIENT
  Age: 73 Year
  Sex: Female
  Weight: 64 kg

DRUGS (2)
  1. ISOPTIN [Suspect]
     Indication: ANGINA PECTORIS
     Dosage: 240 MG, 1 IN 1 D, ORAL
     Route: 048
     Dates: start: 20031203
  2. ISOPTIN [Suspect]
     Indication: HYPERTENSION
     Dosage: 240 MG, 1 IN 1 D, ORAL
     Route: 048
     Dates: start: 20031203

REACTIONS (3)
  - BLOOD PRESSURE INCREASED [None]
  - DRUG INEFFECTIVE [None]
  - DYSPNOEA [None]
